FAERS Safety Report 5916880-4 (Version None)
Quarter: 2008Q3

REPORT INFORMATION
  Report Type: 
  Country: None (occurrence: None)
  Receive Date: 20080909
  Receipt Date: 20080129
  Transmission Date: 20090109
  Serious: Yes (Hospitalization)
  Sender: FDA-Public Use
  Company Number: 163-20785-08010116 (0)

PATIENT
  Age: 81 Year
  Sex: Male

DRUGS (1)
  1. THALOMID [Suspect]
     Indication: GAMMOPATHY
     Dosage: 50 - 100MG DAILY, ORAL
     Route: 048
     Dates: start: 20061001, end: 20071201

REACTIONS (1)
  - PNEUMONIA [None]
